FAERS Safety Report 13817111 (Version 3)
Quarter: 2017Q3

REPORT INFORMATION
  Report Type: Report from Study
  Country: IN (occurrence: IN)
  Receive Date: 20170731
  Receipt Date: 20170830
  Transmission Date: 20171127
  Serious: Yes (Death, Other)
  Sender: FDA-Public Use
  Company Number: IN-BRISTOL-MYERS SQUIBB COMPANY-BMS-2017-065887

PATIENT
  Age: 65 Year
  Sex: Male

DRUGS (1)
  1. DASATINIB [Suspect]
     Active Substance: DASATINIB
     Indication: CHRONIC MYELOID LEUKAEMIA
     Dosage: 100 MG, QD
     Route: 048
     Dates: start: 20170403, end: 20170626

REACTIONS (4)
  - Malignant neoplasm progression [Fatal]
  - Pyrexia [Unknown]
  - Pulmonary oedema [Fatal]
  - Fluid retention [Unknown]

NARRATIVE: CASE EVENT DATE: 20170627
